FAERS Safety Report 9772790 (Version 4)
Quarter: 2014Q2

REPORT INFORMATION
  Report Type: Report from Study
  Country: US (occurrence: US)
  Receive Date: 20131219
  Receipt Date: 20140430
  Transmission Date: 20141212
  Serious: Yes (Hospitalization)
  Sender: FDA-Public Use
  Company Number: US-BRISTOL-MYERS SQUIBB COMPANY-19904788

PATIENT
  Age: 57 Year
  Sex: Female
  Weight: 86.9 kg

DRUGS (33)
  1. IPILIMUMAB [Suspect]
     Indication: OVARIAN CANCER
     Dosage: INTERRUPTED ON:15NOV2013
     Route: 042
     Dates: start: 20131115, end: 20131115
  2. VITAMIN C [Concomitant]
     Dates: start: 200101
  3. BEE POLLEN [Concomitant]
     Dates: start: 201302
  4. CALCIUM + MAGNESIUM [Concomitant]
     Dosage: 1DF = 500/250 MG
     Dates: start: 201003
  5. ECHINACEA [Concomitant]
     Dosage: 1DF = 4 CAPS
     Dates: start: 200905
  6. LUTEIN [Concomitant]
     Dates: start: 201001
  7. HYDROCHLOROTHIAZIDE [Concomitant]
     Dates: start: 201001
  8. IRON [Concomitant]
     Dates: start: 201305
  9. ATIVAN [Concomitant]
     Dates: start: 201003
  10. MULTIVITAMIN [Concomitant]
     Dates: start: 201305
  11. OMEGA [Concomitant]
  12. POTASSIUM CHLORIDE [Concomitant]
     Dosage: 1DF = 1 TABLE SPOON
     Dates: start: 201308
  13. LYRICA [Concomitant]
     Dosage: 50 MG
     Dates: start: 201303
  14. VITAMIN B6 [Concomitant]
     Dates: start: 201302
  15. VITAMIN E [Concomitant]
     Dates: start: 201003
  16. EFFEXOR XR [Concomitant]
     Dates: start: 201003
  17. VITAMIN B COMPLEX [Concomitant]
     Dates: start: 201302
  18. VITAMIN D [Concomitant]
     Dates: start: 201302
  19. WARFARIN [Concomitant]
     Dates: start: 201307
  20. TYLENOL [Concomitant]
     Dates: start: 20131007
  21. METHYLPREDNISOLONE [Concomitant]
     Dates: start: 20131031
  22. ZOFRAN [Concomitant]
     Dates: start: 20131104
  23. OMEPRAZOLE [Concomitant]
     Dates: start: 20131108
  24. LEVOTHYROXINE [Concomitant]
     Dates: start: 20131113
  25. PHILLIPS LAXCAPS [Concomitant]
     Dates: start: 20131115
  26. COUMADIN [Concomitant]
     Dosage: 25NOV-26NOV2013,?2MG
     Dates: start: 20131115
  27. ASPIRIN [Concomitant]
     Dates: start: 20131127
  28. PREDNISONE [Concomitant]
     Dosage: 27NOV-3DEC2013,7.5 MG?6DEC2013-ONG, 90MG
     Dates: start: 20131127
  29. SOLU-MEDROL [Concomitant]
  30. AZITHROMYCIN [Concomitant]
  31. LEVAQUIN [Concomitant]
  32. LOVENOX [Concomitant]
  33. TAMIFLU [Concomitant]

REACTIONS (3)
  - Pulmonary embolism [Recovered/Resolved]
  - Pneumonitis [Recovered/Resolved]
  - Hypoxia [Recovered/Resolved]
